FAERS Safety Report 19243145 (Version 5)
Quarter: 2021Q3

REPORT INFORMATION
  Report Type: Spontaneous
  Country: JP (occurrence: JP)
  Receive Date: 20210511
  Receipt Date: 20210714
  Transmission Date: 20211014
  Serious: Yes (Death, Other)
  Sender: FDA-Public Use
  Company Number: JP-OTSUKA-2021_015933

PATIENT
  Sex: Male
  Weight: 82 kg

DRUGS (20)
  1. LEVOMEPROMAZINE [LEVOMEPROMAZINE MALEATE] [Concomitant]
     Active Substance: LEVOMEPROMAZINE MALEATE
     Indication: PRODUCT USED FOR UNKNOWN INDICATION
     Dosage: 1T, UNK
     Route: 048
  2. ABILIFY [Concomitant]
     Active Substance: ARIPIPRAZOLE
     Dosage: 9MG/DAY, UNK
     Route: 065
     Dates: start: 20160511, end: 20160524
  3. ABILIFY [Concomitant]
     Active Substance: ARIPIPRAZOLE
     Dosage: 24MG/DAY, UNK
     Route: 065
     Dates: start: 20141001, end: 20160315
  4. ETIZOLAM [Concomitant]
     Active Substance: ETIZOLAM
     Dosage: 1T, AS NEEDED
     Route: 048
  5. SILODOSIN. [Concomitant]
     Active Substance: SILODOSIN
     Indication: PRODUCT USED FOR UNKNOWN INDICATION
     Dosage: 2T, UNK
     Route: 048
  6. ZOPICLONE [Concomitant]
     Active Substance: ZOPICLONE
     Indication: PRODUCT USED FOR UNKNOWN INDICATION
     Dosage: 1T, UNK
     Route: 048
  7. ETIZOLAM [Concomitant]
     Active Substance: ETIZOLAM
     Indication: PRODUCT USED FOR UNKNOWN INDICATION
     Dosage: 1T, UNK
     Route: 048
  8. ABILIFY [Concomitant]
     Active Substance: ARIPIPRAZOLE
     Indication: PRODUCT USED FOR UNKNOWN INDICATION
     Dosage: 6MG/DAY, UNK
     Route: 048
     Dates: start: 20131127, end: 20131210
  9. ABILIFY [Concomitant]
     Active Substance: ARIPIPRAZOLE
     Indication: PRODUCT USED FOR UNKNOWN INDICATION
     Dosage: 12MG/DAY, UNK
     Route: 065
     Dates: start: 20131211, end: 20140930
  10. SUMILU [Concomitant]
     Active Substance: FELBINAC
     Indication: PRODUCT USED FOR UNKNOWN INDICATION
     Dosage: UNK, FEW TIMES/DAY
     Route: 061
     Dates: start: 20180228
  11. ABILIFY [Concomitant]
     Active Substance: ARIPIPRAZOLE
     Dosage: 18MG/DAY, UNK
     Route: 065
     Dates: start: 20160316, end: 20160426
  12. ABILIFY [Concomitant]
     Active Substance: ARIPIPRAZOLE
     Dosage: 6MG/DAY, UNK
     Route: 065
     Dates: start: 20160525, end: 20170606
  13. BROTIZOLAM [Concomitant]
     Active Substance: BROTIZOLAM
     Indication: PRODUCT USED FOR UNKNOWN INDICATION
     Dosage: 1T, UNK
     Route: 048
  14. HIBERNA [PROMETHAZINE HYDROCHLORIDE] [Concomitant]
     Indication: PRODUCT USED FOR UNKNOWN INDICATION
     Dosage: 2T, UNK
     Route: 048
     Dates: start: 20201014
  15. ABILIFY [Concomitant]
     Active Substance: ARIPIPRAZOLE
     Dosage: 12MG/DAY, UNK
     Route: 065
     Dates: start: 20160427, end: 20160510
  16. LITHIUM CARBONATE. [Concomitant]
     Active Substance: LITHIUM CARBONATE
     Indication: PRODUCT USED FOR UNKNOWN INDICATION
     Dosage: 2T, UNK
     Route: 048
  17. MAGNESIUM OXIDE. [Concomitant]
     Active Substance: MAGNESIUM OXIDE
     Indication: PRODUCT USED FOR UNKNOWN INDICATION
     Dosage: 6T, UNK
     Route: 048
  18. ZOTEPINE [Concomitant]
     Active Substance: ZOTEPINE
     Indication: PRODUCT USED FOR UNKNOWN INDICATION
     Dosage: 2T, UNK
     Route: 048
     Dates: start: 20170607
  19. ABILIFY MAINTENA [Suspect]
     Active Substance: ARIPIPRAZOLE
     Indication: SCHIZOPHRENIA
     Dosage: 400MG/SHOT
     Route: 030
     Dates: start: 20160217, end: 20201223
  20. BIPERIDEN HYDROCHLORIDE [Concomitant]
     Active Substance: BIPERIDEN HYDROCHLORIDE
     Indication: PRODUCT USED FOR UNKNOWN INDICATION
     Dosage: 2T, UNK
     Route: 048

REACTIONS (1)
  - Sudden death [Fatal]
